FAERS Safety Report 5853729-2 (Version None)
Quarter: 2008Q3

REPORT INFORMATION
  Report Type: 
  Country: None (occurrence: None)
  Receive Date: 20080822
  Receipt Date: 20080814
  Transmission Date: 20090109
  Serious: Yes (Hospitalization)
  Sender: FDA-Public Use
  Company Number: GB-AMGEN-US275055

PATIENT
  Sex: Male
  Weight: 84 kg

DRUGS (8)
  1. ENBREL [Suspect]
     Indication: ARTHRITIS REACTIVE
     Route: 058
     Dates: start: 20050307
  2. PREDNISOLONE [Concomitant]
     Dosage: UNKNOWN
  3. SALBUTAMOL [Concomitant]
     Dosage: 2 PUFFS, AS REQUIRED
  4. FOLIC ACID [Concomitant]
     Dosage: 5MG, FREQUENCY UNKNOWN
  5. MORPHINE [Concomitant]
     Dosage: UNKNOWN
  6. ACETAMINOPHEN [Concomitant]
     Dosage: UNKNOWN
  7. SULFASALAZINE [Concomitant]
     Dosage: UNKNOWN
  8. ADCAL [Concomitant]
     Dosage: UNKNOWN

REACTIONS (1)
  - CELLULITIS STAPHYLOCOCCAL [None]
